FAERS Safety Report 5279572-3 (Version None)
Quarter: 2007Q1

REPORT INFORMATION
  Report Type: 
  Country: None (occurrence: None)
  Receive Date: 20070328
  Receipt Date: 20070316
  Transmission Date: 20070707
  Serious: Yes (Hospitalization)
  Sender: FDA-Public Use
  Company Number: GB-PFIZER INC-2007021760

PATIENT
  Age: 56 Year
  Sex: Female
  Weight: 66 kg

DRUGS (5)
  1. SULFASALAZINE [Suspect]
     Indication: RHEUMATOID ARTHRITIS
     Route: 048
     Dates: start: 20061201, end: 20070201
  2. ATENOLOL [Concomitant]
     Dosage: DAILY DOSE:50MG
     Route: 048
  3. LEVOTHYROXINE SODIUM [Concomitant]
     Dosage: DAILY DOSE:75MG
     Route: 048
  4. MELOXICAM [Concomitant]
     Indication: RHEUMATOID ARTHRITIS
     Dosage: DAILY DOSE:7.5MG
     Route: 048
  5. PREDNISOLONE [Concomitant]
     Indication: RHEUMATOID ARTHRITIS
     Dosage: DAILY DOSE:10MG
     Route: 048

REACTIONS (4)
  - EOSINOPENIA [None]
  - MOUTH ULCERATION [None]
  - NEUTROPENIA [None]
  - PHARYNGOLARYNGEAL PAIN [None]
